FAERS Safety Report 16370054 (Version 1)
Quarter: 2019Q2

REPORT INFORMATION
  Report Type: Spontaneous
  Country: FR (occurrence: FR)
  Receive Date: 20190530
  Receipt Date: 20190530
  Transmission Date: 20190711
  Serious: Yes (Life-Threatening, Hospitalization)
  Sender: FDA-Public Use
  Company Number: FR-PFIZER INC-2019226970

PATIENT
  Age: 44 Year
  Sex: Male

DRUGS (10)
  1. DILANTIN [Suspect]
     Active Substance: PHENYTOIN
     Indication: STATUS EPILEPTICUS
     Dosage: 160 MG, 1X/DAY
     Route: 051
     Dates: start: 20190328, end: 20190328
  2. ALEPSAL [CAFFEINE;PHENOBARBITAL] [Suspect]
     Active Substance: CAFFEINE\PHENOBARBITAL
     Indication: EPILEPSY
     Dosage: 100 MG, 1X/DAY
     Route: 048
     Dates: end: 20190328
  3. CELOCURINE [SUXAMETHONIUM CHLORIDE] [Suspect]
     Active Substance: SUCCINYLCHOLINE CHLORIDE
     Indication: SEDATION
     Dosage: UNK
     Route: 051
     Dates: start: 20190328, end: 20190328
  4. REMIFENTANIL MYLAN [Suspect]
     Active Substance: REMIFENTANIL
     Indication: SEDATION
     Dosage: UNK
     Route: 051
     Dates: start: 20190328, end: 20190329
  5. RIVOTRIL [Suspect]
     Active Substance: CLONAZEPAM
     Indication: STATUS EPILEPTICUS
     Dosage: 2 MG, 1X/DAY
     Route: 051
     Dates: start: 20190328, end: 20190328
  6. THIOPENTAL SODIUM. [Suspect]
     Active Substance: THIOPENTAL SODIUM
     Indication: SEDATION
     Route: 051
     Dates: start: 20190328, end: 20190328
  7. FENTANYL. [Suspect]
     Active Substance: FENTANYL
     Indication: SEDATION
     Dosage: UNK
     Route: 051
     Dates: start: 20190328, end: 20190328
  8. LAMICTAL [Suspect]
     Active Substance: LAMOTRIGINE
     Indication: EPILEPSY
     Dosage: 225 MG, 1X/DAY
     Route: 048
  9. PROPOFOL. [Suspect]
     Active Substance: PROPOFOL
     Indication: SEDATION
     Dosage: UNK
     Route: 051
     Dates: start: 20190328, end: 20190329
  10. CEFTRIAXONE MYLAN [Suspect]
     Active Substance: CEFTRIAXONE
     Indication: HYPERTHERMIA
     Dosage: 4 G, 1X/DAY
     Route: 051
     Dates: start: 20190328, end: 20190331

REACTIONS (4)
  - Hepatitis fulminant [Recovered/Resolved with Sequelae]
  - Disseminated intravascular coagulation [Recovered/Resolved with Sequelae]
  - Hepatocellular injury [Recovered/Resolved with Sequelae]
  - Underdose [Recovered/Resolved]

NARRATIVE: CASE EVENT DATE: 20190328
